FAERS Safety Report 5353610-1 (Version None)
Quarter: 2007Q2

REPORT INFORMATION
  Report Type: 
  Country: None (occurrence: None)
  Receive Date: 20070612
  Receipt Date: 20070402
  Transmission Date: 20071010
  Serious: No
  Sender: FDA-Public Use
  Company Number: US-BAUSCH-2007BL001084

PATIENT
  Age: 60 Year
  Sex: Female

DRUGS (2)
  1. BRIMONIDINE TARTRATE [Suspect]
     Indication: GLAUCOMA
     Route: 047
     Dates: start: 20060901, end: 20070330
  2. DEPAKOTE [Concomitant]

REACTIONS (9)
  - ANXIETY [None]
  - DEPRESSION [None]
  - DIZZINESS [None]
  - DYSGEUSIA [None]
  - HYPERTENSION [None]
  - INSOMNIA [None]
  - NASAL DRYNESS [None]
  - ORAL PAIN [None]
  - RESPIRATORY DISORDER [None]
